FAERS Safety Report 8105699-4 (Version None)
Quarter: 2012Q1

REPORT INFORMATION
  Report Type: 
  Country: None (occurrence: None)
  Receive Date: 20120201
  Receipt Date: 20120127
  Transmission Date: 20120608
  Serious: Yes (Other)
  Sender: FDA-Public Use
  Company Number: CA-PFIZER INC-2012024292

PATIENT
  Age: 11 Year
  Sex: Female

DRUGS (3)
  1. INSULIN [Concomitant]
     Dosage: UNK
  2. MYCOPHENOLATE MOFETIL (CELLCEPT) [Concomitant]
     Dosage: UNK
  3. SIROLIMUS [Suspect]
     Dosage: UNK
     Dates: start: 20081101

REACTIONS (2)
  - JOINT SWELLING [None]
  - ARTHRALGIA [None]
